FAERS Safety Report 6154837-1 (Version None)
Quarter: 2009Q2

REPORT INFORMATION
  Report Type: 
  Country: None (occurrence: None)
  Receive Date: 20090414
  Receipt Date: 20090402
  Transmission Date: 20091009
  Serious: Yes (Other)
  Sender: FDA-Public Use
  Company Number: JP-PFIZER INC-2009176566

PATIENT

DRUGS (1)
  1. GENOTROPIN [Suspect]
     Dosage: 0.3 MG, 1X/DAY
     Dates: start: 20090121

REACTIONS (1)
  - SCHIZOPHRENIFORM DISORDER [None]
